FAERS Safety Report 23064316 (Version 2)
Quarter: 2023Q4

REPORT INFORMATION
  Report Type: Spontaneous
  Country: CZ (occurrence: CZ)
  Receive Date: 20231013
  Receipt Date: 20231120
  Transmission Date: 20240110
  Serious: Yes (Other)
  Sender: FDA-Public Use
  Company Number: CZ-TEVA-2023-CZ-2934057

PATIENT
  Age: 61 Year
  Sex: Male
  Weight: 88 kg

DRUGS (3)
  1. PEMETREXED [Suspect]
     Active Substance: PEMETREXED
     Indication: Bronchial carcinoma
     Dosage: 23.8095 MG/M2 DAILY; 5 CYCLES
     Route: 065
     Dates: start: 201905, end: 2019
  2. ERLOTINIB [Suspect]
     Active Substance: ERLOTINIB
     Indication: Bronchial carcinoma
     Dosage: 250 MILLIGRAM DAILY;
     Route: 065
     Dates: start: 202007, end: 202009
  3. CISPLATIN [Concomitant]
     Active Substance: CISPLATIN
     Indication: Bronchial carcinoma
     Dosage: 75 MG/M2
     Route: 065
     Dates: start: 201905

REACTIONS (2)
  - Renal impairment [Recovered/Resolved]
  - Therapy non-responder [Unknown]

NARRATIVE: CASE EVENT DATE: 20190101
